FAERS Safety Report 9955948 (Version 1)
Quarter: 2014Q1

REPORT INFORMATION
  Report Type: Report from Study
  Country: US (occurrence: US)
  Receive Date: 20140304
  Receipt Date: 20140304
  Transmission Date: 20141002
  Serious: No
  Sender: FDA-Public Use
  Company Number: US-ABBVIE-13P-163-1084213-00

PATIENT
  Age: 48 Year
  Sex: 0

DRUGS (2)
  1. HUMIRA [Suspect]
     Indication: RHEUMATOID ARTHRITIS
     Route: 058
     Dates: start: 20130409, end: 20130416
  2. UNITHROID [Concomitant]
     Indication: HYPOTHYROIDISM

REACTIONS (1)
  - Rash [Recovered/Resolved]
